FAERS Safety Report 6536763-9 (Version None)
Quarter: 2010Q1

REPORT INFORMATION
  Report Type: 
  Country: None (occurrence: None)
  Receive Date: 20100105
  Receipt Date: 20091223
  Transmission Date: 20100710
  Serious: Yes (Other)
  Sender: FDA-Public Use
  Company Number: 2009SP031285

PATIENT
  Age: 28 Year
  Sex: Female

DRUGS (4)
  1. IMPLANON [Suspect]
     Indication: DRUG USE FOR UNKNOWN INDICATION
     Dosage: 1 DF
     Dates: start: 20090626, end: 20090829
  2. TOPIRAMATE [Suspect]
     Indication: EPILEPSY
     Dosage: 75 MG; QPM; 50 MG; QAM;
  3. LAMOTRIGINE [Suspect]
     Indication: EPILEPSY
     Dosage: 250 MG; BID;
  4. CLOBAZAM [Concomitant]

REACTIONS (7)
  - DEVICE EXPULSION [None]
  - DRUG INEFFECTIVE [None]
  - EPILEPSY [None]
  - FALL [None]
  - IMPLANT SITE PAIN [None]
  - THERMAL BURN [None]
  - VAGINAL HAEMORRHAGE [None]
